FAERS Safety Report 14572389 (Version 1)
Quarter: 2018Q1

REPORT INFORMATION
  Report Type: Report from Study
  Country: BR (occurrence: BR)
  Receive Date: 20180226
  Receipt Date: 20180226
  Transmission Date: 20180509
  Serious: Yes (Hospitalization)
  Sender: FDA-Public Use
  Company Number: BR-UCBSA-2018007333

PATIENT
  Age: 43 Year
  Sex: Female

DRUGS (1)
  1. LEVETIRACETAM. [Suspect]
     Active Substance: LEVETIRACETAM
     Indication: PRODUCT USED FOR UNKNOWN INDICATION
     Dosage: 250 MG ONCE DAILY IN MORNING AND 750 MG ONCE DAILY AT NIGHT,2X/DAY (BID)
     Route: 048
     Dates: start: 201801

REACTIONS (2)
  - Off label use [Unknown]
  - Hysterectomy [Recovered/Resolved]

NARRATIVE: CASE EVENT DATE: 201801
